FAERS Safety Report 9307820 (Version 6)
Quarter: 2014Q1

REPORT INFORMATION
  Report Type: Report from Study
  Country: CA (occurrence: CA)
  Receive Date: 20130524
  Receipt Date: 20140318
  Transmission Date: 20141002
  Serious: Yes (Hospitalization, Other)
  Sender: FDA-Public Use
  Company Number: CA-CELGENEUS-028-C5013-13051870

PATIENT
  Age: 63 Year
  Sex: Male
  Weight: 73.6 kg

DRUGS (10)
  1. CC-5013 [Suspect]
     Indication: CHRONIC LYMPHOCYTIC LEUKAEMIA
     Dosage: 20 MILLIGRAM
     Route: 065
     Dates: start: 20100201
  2. CC-5013 [Suspect]
     Dosage: 20 MILLIGRAM
     Route: 065
     Dates: start: 20130515, end: 20130603
  3. CC-5013 [Suspect]
     Dosage: 20 MILLIGRAM
     Route: 065
     Dates: start: 20130711
  4. ASA [Concomitant]
     Indication: THROMBOSIS PROPHYLAXIS
     Dosage: 81 MILLIGRAM
     Route: 048
     Dates: start: 20121031
  5. GRANULOCYTE COLONY-STIMULATING FACTOR NOS [Concomitant]
     Indication: PRODUCT USED FOR UNKNOWN INDICATION
     Dosage: 300 MICROGRAM
     Route: 058
     Dates: start: 20130125, end: 20130603
  6. LACRILUBE [Concomitant]
     Indication: EYE LUBRICATION THERAPY
     Dosage: 1-2 DROPS
     Route: 047
     Dates: start: 20130219
  7. RABEPRAZOLE [Concomitant]
     Indication: DYSPEPSIA
     Dosage: 20 MILLIGRAM
     Route: 048
     Dates: start: 20111130
  8. COLACE [Concomitant]
     Indication: PRODUCT USED FOR UNKNOWN INDICATION
     Dosage: 200 MILLIGRAM
     Route: 065
  9. LANSOPRAZOLE [Concomitant]
     Indication: GASTROOESOPHAGEAL REFLUX DISEASE
     Dosage: 30 MILLIGRAM
     Route: 048
     Dates: start: 20111130
  10. TYLENOL #3 [Concomitant]
     Indication: PROCEDURAL PAIN
     Route: 048
     Dates: start: 201306

REACTIONS (4)
  - Lung adenocarcinoma [Recovered/Resolved]
  - Pneumothorax [Recovered/Resolved with Sequelae]
  - Subcutaneous emphysema [Recovered/Resolved]
  - Pneumothorax [Recovered/Resolved with Sequelae]
